FAERS Safety Report 6643377-9 (Version None)
Quarter: 2010Q1

REPORT INFORMATION
  Report Type: 
  Country: None (occurrence: None)
  Receive Date: 20100319
  Receipt Date: 20100308
  Transmission Date: 20100710
  Serious: Yes (Other)
  Sender: FDA-Public Use
  Company Number: US-ELI_LILLY_AND_COMPANY-US201002002481

PATIENT
  Age: 65 Year
  Sex: Female
  Weight: 53.968 kg

DRUGS (13)
  1. CYMBALTA [Suspect]
     Indication: DEPRESSION
     Dosage: 60 MG, UNK
     Dates: start: 20080101, end: 20091101
  2. CYMBALTA [Suspect]
     Dosage: 60 MG, UNK
     Dates: start: 20091201, end: 20100201
  3. CYMBALTA [Suspect]
     Dosage: 60 MG, UNK
     Dates: start: 20100212
  4. OXYCODONE HCL [Concomitant]
     Indication: PAIN
  5. DIPHENOXYLATE [Concomitant]
     Indication: DIARRHOEA
  6. AMBIEN [Concomitant]
     Indication: INSOMNIA
  7. SYNTHROID [Concomitant]
     Indication: HYPOTHYROIDISM
  8. FOSAMAX [Concomitant]
     Indication: OSTEOPOROSIS
  9. KLONOPIN [Concomitant]
     Indication: MUSCLE SPASTICITY
  10. QUESTRAN [Concomitant]
     Indication: DIARRHOEA
  11. NEXIUM [Concomitant]
  12. MIACALCIN [Concomitant]
     Indication: OSTEOPOROSIS
  13. ACETAMINOPHEN [Concomitant]
     Dosage: 1 G, AS NEEDED

REACTIONS (6)
  - ALANINE AMINOTRANSFERASE INCREASED [None]
  - ASPARTATE AMINOTRANSFERASE INCREASED [None]
  - BILIARY TRACT DISORDER [None]
  - BLOOD ALKALINE PHOSPHATASE [None]
  - BLOOD CREATININE [None]
  - HEPATIC STEATOSIS [None]
